FAERS Safety Report 22131006 (Version 1)
Quarter: 2023Q1

REPORT INFORMATION
  Report Type: Spontaneous
  Country: US (occurrence: US)
  Receive Date: 20230323
  Receipt Date: 20230323
  Transmission Date: 20230418
  Serious: Yes (Other)
  Sender: FDA-Public Use
  Company Number: US-INNOCOLL BIOTHERAPEUTICS-2022INN00114

PATIENT
  Sex: Male

DRUGS (1)
  1. XARACOLL [Suspect]
     Active Substance: BUPIVACAINE
     Indication: Inguinal hernia repair
     Dosage: 300 MG, ONCE AT SITE OF INGUINAL HERNIA
     Dates: start: 20221114

REACTIONS (1)
  - Postoperative wound infection [Recovered/Resolved]

NARRATIVE: CASE EVENT DATE: 20220101
